FAERS Safety Report 6600347-4 (Version None)
Quarter: 2010Q1

REPORT INFORMATION
  Report Type: 
  Country: None (occurrence: None)
  Receive Date: 20100224
  Receipt Date: 20091216
  Transmission Date: 20100710
  Serious: Yes (Other)
  Sender: FDA-Public Use
  Company Number: US-PFIZER INC-2009280584

PATIENT
  Sex: Male
  Weight: 73.481 kg

DRUGS (6)
  1. CHANTIX [Suspect]
     Indication: SMOKING CESSATION THERAPY
     Dosage: UNK
     Dates: start: 20090914, end: 20091002
  2. SIMVASTATIN [Concomitant]
     Dosage: 40 MG EVERY EVENING
  3. LISINOPRIL [Concomitant]
     Dosage: 10MG DAILY
  4. ATENOLOL [Concomitant]
     Dosage: 50 MG DAILY
  5. NAMENDA [Concomitant]
     Dosage: 10 MG, 2X/DAY
  6. NIACIN [Concomitant]
     Dosage: 500MG EVERY EVENING

REACTIONS (6)
  - BRONCHITIS [None]
  - CONFUSIONAL STATE [None]
  - DEMENTIA [None]
  - DISORIENTATION [None]
  - NASOPHARYNGITIS [None]
  - RESPIRATORY TRACT INFECTION [None]
